FAERS Safety Report 23094868 (Version 1)
Quarter: 2023Q4

REPORT INFORMATION
  Report Type: Other
  Country: US (occurrence: None)
  Receive Date: 20231023
  Receipt Date: 20231023
  Transmission Date: 20240109
  Serious: Yes (Life-Threatening)
  Sender: FDA-Public Use
  Company Number: US-ROCHE-3442359

PATIENT
  Age: 60 Year
  Sex: Male

DRUGS (11)
  1. TOCILIZUMAB [Suspect]
     Active Substance: TOCILIZUMAB
     Indication: COVID-19 pneumonia
     Dosage: ON DAY 2
     Route: 065
  2. DEXAMETHASONE [Concomitant]
     Active Substance: DEXAMETHASONE
     Indication: COVID-19 pneumonia
     Route: 042
  3. REMDESIVIR [Concomitant]
     Active Substance: REMDESIVIR
     Indication: COVID-19 pneumonia
     Route: 042
  4. OXYGEN [Concomitant]
     Active Substance: OXYGEN
  5. PREDNISOLONE [Concomitant]
     Active Substance: PREDNISOLONE
     Route: 061
  6. AZITHROMYCIN [Concomitant]
     Active Substance: AZITHROMYCIN
     Route: 048
  7. FLUCONAZOLE [Concomitant]
     Active Substance: FLUCONAZOLE
     Route: 048
  8. VALACYCLOVIR [Concomitant]
     Active Substance: VALACYCLOVIR HYDROCHLORIDE
  9. CEFTRIAXONE [Concomitant]
     Active Substance: CEFTRIAXONE\CEFTRIAXONE SODIUM
     Route: 042
  10. VORICONAZOLE [Concomitant]
     Active Substance: VORICONAZOLE
     Route: 050
  11. AMPHOTERICIN B [Concomitant]
     Active Substance: AMPHOTERICIN B
     Dosage: 5 MICROG/0.1ML INJECTION

REACTIONS (2)
  - Disseminated aspergillosis [Unknown]
  - Off label use [Unknown]
